FAERS Safety Report 13395235 (Version 1)
Quarter: 2017Q1

REPORT INFORMATION
  Report Type: Spontaneous
  Country: US (occurrence: US)
  Receive Date: 20170331
  Receipt Date: 20170331
  Transmission Date: 20170429
  Serious: No
  Sender: FDA-Public Use
  Company Number: None

PATIENT
  Age: 50 Year
  Sex: Female
  Weight: 78.75 kg

DRUGS (2)
  1. DEXTROAMPHET SACCHARAT, AMPHET ASPARTATE, DEXTROAMPHET SULFATE AND AMPHET SULFAT [Suspect]
     Active Substance: AMPHETAMINE ASPARTATE\AMPHETAMINE SULFATE\DEXTROAMPHETAMINE SACCHARATE\DEXTROAMPHETAMINE SULFATE
     Indication: ATTENTION DEFICIT/HYPERACTIVITY DISORDER
     Dosage: ?          QUANTITY:1 TABLET(S);?
     Route: 048
     Dates: start: 20170315, end: 20170331
  2. MOTRIN [Concomitant]
     Active Substance: IBUPROFEN

REACTIONS (7)
  - Drug ineffective [None]
  - Dizziness [None]
  - Decreased interest [None]
  - Fatigue [None]
  - Dyspnoea [None]
  - Heart rate increased [None]
  - Disturbance in attention [None]

NARRATIVE: CASE EVENT DATE: 20170331
